FAERS Safety Report 18087409 (Version 3)
Quarter: 2020Q3

REPORT INFORMATION
  Report Type: Spontaneous
  Country: JP (occurrence: JP)
  Receive Date: 20200729
  Receipt Date: 20200824
  Transmission Date: 20201103
  Serious: Yes (Hospitalization, Disabling)
  Sender: FDA-Public Use
  Company Number: JP-PFIZER INC-2020286557

PATIENT
  Age: 79 Year
  Sex: Male
  Weight: 64.5 kg

DRUGS (10)
  1. ARGAMATE [Concomitant]
     Active Substance: CALCIUM POLYSTYRENE SULFONATE
     Indication: HYPERKALAEMIA
     Dosage: 25 G, 3X/DAY
     Route: 048
     Dates: start: 20200330
  2. VYNDAQEL [Suspect]
     Active Substance: TAFAMIDIS MEGLUMINE
     Dosage: 80 MG
     Dates: start: 20200817
  3. DEPAS [ETIZOLAM] [Suspect]
     Active Substance: ETIZOLAM
     Indication: INSOMNIA
     Dosage: 1 MG, 1X/DAY
     Route: 048
     Dates: start: 20191023, end: 20200727
  4. NEXIUM [Concomitant]
     Active Substance: ESOMEPRAZOLE MAGNESIUM
     Indication: CHRONIC GASTRITIS
     Dosage: 20 MG, 1X/DAY
     Route: 048
     Dates: start: 20191023
  5. TENELIA [Concomitant]
     Active Substance: TENELIGLIPTIN
     Indication: DIABETES MELLITUS
     Dosage: 20 MG, 1X/DAY
     Route: 048
     Dates: start: 20191023, end: 20200727
  6. VYNDAQEL [Suspect]
     Active Substance: TAFAMIDIS MEGLUMINE
     Indication: CARDIAC AMYLOIDOSIS
     Dosage: 80 MG, 1X/DAY
     Route: 048
     Dates: start: 20200518, end: 20200727
  7. WARFARIN [Suspect]
     Active Substance: WARFARIN
     Indication: ATRIAL FIBRILLATION
     Dosage: 1.5 MG, 1X/DAY
     Route: 048
     Dates: start: 20191023, end: 20200727
  8. AMIODARONE [Concomitant]
     Active Substance: AMIODARONE
     Indication: ATRIAL FIBRILLATION
     Dosage: 100 MG, 1X/DAY
     Route: 048
     Dates: start: 20191031
  9. FUROSEMIDE. [Concomitant]
     Active Substance: FUROSEMIDE
     Indication: CARDIAC FAILURE CHRONIC
     Dosage: 10 MG, 1X/DAY
     Route: 048
     Dates: start: 20191023
  10. CANAGLU [Concomitant]
     Active Substance: CANAGLIFLOZIN
     Indication: DIABETES MELLITUS
     Dosage: 100 MG, 1X/DAY
     Route: 048
     Dates: start: 20191023, end: 20200727

REACTIONS (2)
  - Fall [Unknown]
  - Subdural haematoma [Recovering/Resolving]

NARRATIVE: CASE EVENT DATE: 20200713
